FAERS Safety Report 5466725-4 (Version None)
Quarter: 2007Q3

REPORT INFORMATION
  Report Type: 
  Country: None (occurrence: None)
  Receive Date: 20070924
  Receipt Date: 20070924
  Transmission Date: 20080115
  Serious: No
  Sender: FDA-Public Use
  Company Number: None

PATIENT
  Age: 24 Year
  Sex: Female
  Weight: 56.6996 kg

DRUGS (2)
  1. HALOPERIDOL [Suspect]
     Indication: MANIA
     Dosage: 7.5 MG PO
     Route: 048
  2. HALOPERIDOL [Suspect]
     Indication: PARANOIA
     Dosage: 7.5 MG PO
     Route: 048

REACTIONS (3)
  - COGWHEEL RIGIDITY [None]
  - EXTRAPYRAMIDAL DISORDER [None]
  - EYE ROLLING [None]
